FAERS Safety Report 21530863 (Version 1)
Quarter: 2022Q4

REPORT INFORMATION
  Report Type: Spontaneous
  Country: US (occurrence: None)
  Receive Date: 20221030
  Receipt Date: 20221030
  Transmission Date: 20230113
  Serious: Yes (Life-Threatening)
  Sender: FDA-Public Use
  Company Number: None

PATIENT
  Age: 52 Year
  Sex: Female
  Weight: 113.85 kg

DRUGS (1)
  1. TRULICITY [Suspect]
     Active Substance: DULAGLUTIDE
     Indication: Diabetes mellitus
     Dosage: OTHER QUANTITY : 1 INJECTION(S);?OTHER FREQUENCY : WEEKLY;?
     Route: 058

REACTIONS (3)
  - Gastrooesophageal reflux disease [None]
  - Dyspnoea [None]
  - Vomiting [None]

NARRATIVE: CASE EVENT DATE: 20221030
